FAERS Safety Report 9862478 (Version 2)
Quarter: 2014Q1

REPORT INFORMATION
  Report Type: Report from Study
  Country: US (occurrence: US)
  Receive Date: 20140203
  Receipt Date: 20140210
  Transmission Date: 20141002
  Serious: Yes (Other)
  Sender: FDA-Public Use
  Company Number: US-ASTELLAS-2014US001075

PATIENT
  Sex: 0

DRUGS (2)
  1. ERLOTINIB TABLET [Suspect]
     Indication: NEOPLASM
     Dosage: 150 MG, UID/QD
     Route: 048
  2. TOPOTECAN /01210102/ [Suspect]
     Indication: NEOPLASM
     Dosage: 1 MG/M2, 30 MIN INFUSION ON DAY 1-5
     Route: 042

REACTIONS (2)
  - Febrile neutropenia [Unknown]
  - Urine output decreased [Unknown]
